FAERS Safety Report 16311390 (Version 2)
Quarter: 2019Q2

REPORT INFORMATION
  Report Type: Report from Study
  Country: US (occurrence: US)
  Receive Date: 20190514
  Receipt Date: 20190528
  Transmission Date: 20190711
  Serious: Yes (Hospitalization)
  Sender: FDA-Public Use
  Company Number: US-BIOGEN-2019BI00734906

PATIENT
  Age: 60 Year
  Sex: Male

DRUGS (1)
  1. TECFIDERA [Suspect]
     Active Substance: DIMETHYL FUMARATE
     Indication: MULTIPLE SCLEROSIS
     Dosage: MAINTENANCE DOSE
     Route: 048

REACTIONS (8)
  - Osteonecrosis [Unknown]
  - Gait disturbance [Unknown]
  - Pain [Unknown]
  - Flushing [Unknown]
  - Osteoarthritis [Unknown]
  - Heart rate increased [Unknown]
  - Fracture treatment [Unknown]
  - Back disorder [Unknown]

NARRATIVE: CASE EVENT DATE: 201611
